FAERS Safety Report 4712830-7 (Version None)
Quarter: 2005Q3

REPORT INFORMATION
  Report Type: 
  Country: None (occurrence: None)
  Receive Date: 20050711
  Receipt Date: 20050711
  Transmission Date: 20060218
  Serious: Yes (Other)
  Sender: FDA-Public Use
  Company Number: None

PATIENT
  Age: 46 Year
  Sex: Female
  Weight: 49.8957 kg

DRUGS (15)
  1. XYREM [Suspect]
     Dosage: 3 GM PO
     Route: 048
     Dates: start: 20050622
  2. ZONEGRAN [Concomitant]
  3. COLACE [Concomitant]
  4. GUIAFENACIN [Concomitant]
  5. CELEXA [Concomitant]
  6. DITROPAN [Concomitant]
  7. AMBIEN [Concomitant]
  8. PREVACID [Concomitant]
  9. LIDODERM [Concomitant]
  10. DULCOLAX [Concomitant]
  11. BACLOFEN [Concomitant]
  12. TIZANIDINE HCL [Concomitant]
  13. OXYCODONE HCL [Concomitant]
  14. M.V.I. [Concomitant]
  15. KODIAN [Concomitant]

REACTIONS (2)
  - DYSPNOEA [None]
  - MUSCLE SPASTICITY [None]
